FAERS Safety Report 24698234 (Version 2)
Quarter: 2025Q2

REPORT INFORMATION
  Report Type: Spontaneous
  Country: ES (occurrence: ES)
  Receive Date: 20241204
  Receipt Date: 20250512
  Transmission Date: 20250716
  Serious: Yes (Life-Threatening, Hospitalization, Other)
  Sender: SANDOZ
  Company Number: ES-MYLANLABS-2021M1018365

PATIENT
  Age: 66 Year
  Sex: Female

DRUGS (5)
  1. DEFLAZACORT [Suspect]
     Active Substance: DEFLAZACORT
     Indication: Sjogren^s syndrome
     Route: 065
  2. DEFLAZACORT [Suspect]
     Active Substance: DEFLAZACORT
     Indication: Rheumatoid arthritis
  3. ETANERCEPT [Suspect]
     Active Substance: ETANERCEPT
     Indication: Rheumatoid arthritis
     Route: 065
  4. METHOTREXATE [Suspect]
     Active Substance: METHOTREXATE
     Indication: Rheumatoid arthritis
     Route: 065
  5. FOLIC ACID [Concomitant]
     Active Substance: FOLIC ACID
     Indication: Rheumatoid arthritis
     Route: 065

REACTIONS (8)
  - Cerebral venous thrombosis [Unknown]
  - Hydrocephalus [Unknown]
  - Brain oedema [Unknown]
  - Papilloedema [Unknown]
  - Hemianopia homonymous [Unknown]
  - Hemiparesis [Unknown]
  - Nervous system disorder [Unknown]
  - Antiphospholipid syndrome [Unknown]
